FAERS Safety Report 4896367-0 (Version None)
Quarter: 2006Q1

REPORT INFORMATION
  Report Type: 
  Country: None (occurrence: None)
  Receive Date: 20060126
  Receipt Date: 20060112
  Transmission Date: 20060701
  Serious: Yes (Death, Other)
  Sender: FDA-Public Use
  Company Number: 220720

PATIENT
  Age: 56 Year
  Sex: Male

DRUGS (4)
  1. MABTHERA (RITUXIMAB) CONC FOR SOLUTION FOR INFUSION [Suspect]
     Dosage: 700 MG
     Dates: start: 20050802, end: 20051004
  2. CYCLOPHOSPHAMIDE [Concomitant]
  3. DELTISON (PREDNISONE) [Concomitant]
  4. N/DOXORUBICIN HYDROCHLORIDE [Concomitant]

REACTIONS (1)
  - HEPATITIS [None]
